FAERS Safety Report 18154519 (Version 1)
Quarter: 2020Q3

REPORT INFORMATION
  Report Type: Spontaneous
  Country: CA (occurrence: CA)
  Receive Date: 20200817
  Receipt Date: 20200817
  Transmission Date: 20201103
  Serious: Yes (Hospitalization)
  Sender: FDA-Public Use
  Company Number: CA-AUROBINDO-AUR-APL-2020-039129

PATIENT
  Age: 64 Year
  Sex: Female

DRUGS (4)
  1. ROSUVASTATIN TABLET [Suspect]
     Active Substance: ROSUVASTATIN
     Indication: PRODUCT USED FOR UNKNOWN INDICATION
     Dosage: UNK
     Route: 065
  2. VERZENIO [Suspect]
     Active Substance: ABEMACICLIB
     Indication: BREAST CANCER METASTATIC
     Dosage: 100 MILLIGRAM
     Route: 048
  3. VERZENIO [Suspect]
     Active Substance: ABEMACICLIB
     Indication: PRODUCT USED FOR UNKNOWN INDICATION
     Dosage: 150 MILLIGRAM, ONCE A DAY
     Route: 048
  4. VERZENIO [Suspect]
     Active Substance: ABEMACICLIB
     Dosage: UNK
     Route: 048

REACTIONS (6)
  - Drug interaction [Not Recovered/Not Resolved]
  - Off label use [Not Recovered/Not Resolved]
  - Blood phosphorus abnormal [Not Recovered/Not Resolved]
  - Blood test abnormal [Not Recovered/Not Resolved]
  - Blood creatine phosphokinase increased [Not Recovered/Not Resolved]
  - Alanine aminotransferase increased [Not Recovered/Not Resolved]
